FAERS Safety Report 10088934 (Version 1)
Quarter: 2014Q2

REPORT INFORMATION
  Report Type: Report from Study
  Country: US (occurrence: US)
  Receive Date: 20140421
  Receipt Date: 20140421
  Transmission Date: 20141212
  Serious: Yes (Hospitalization, Other)
  Sender: FDA-Public Use
  Company Number: US-JNJFOC-20140409683

PATIENT
  Sex: Female

DRUGS (13)
  1. XARELTO [Suspect]
     Indication: ATRIAL FIBRILLATION
     Dosage: SEP/DEC-2013
     Route: 048
     Dates: start: 2013
  2. XARELTO [Suspect]
     Indication: CEREBROVASCULAR ACCIDENT PROPHYLAXIS
     Dosage: SEP/DEC-2013
     Route: 048
     Dates: start: 2013
  3. ASPIRIN [Suspect]
     Indication: PRODUCT USED FOR UNKNOWN INDICATION
     Route: 048
     Dates: start: 2013, end: 20140409
  4. FLECAINIDE [Suspect]
     Indication: PRODUCT USED FOR UNKNOWN INDICATION
     Route: 065
  5. FLECAINIDE [Suspect]
     Indication: PRODUCT USED FOR UNKNOWN INDICATION
     Dosage: DOSAGE DOUBLED
     Route: 065
     Dates: end: 2014
  6. METOPROLOL [Concomitant]
     Indication: BLOOD PRESSURE
     Route: 048
  7. ATORVASTATIN [Concomitant]
     Indication: BLOOD CHOLESTEROL
     Route: 048
  8. FUROSEMIDE W/POTASSIUM CHLORIDE [Concomitant]
     Indication: PRODUCT USED FOR UNKNOWN INDICATION
     Route: 065
  9. DORZOLAMIDE [Concomitant]
     Indication: GLAUCOMA
     Route: 065
  10. LUMIGAN [Concomitant]
     Indication: GLAUCOMA
     Route: 065
  11. SYNTHROID [Concomitant]
     Indication: THYROID DISORDER
     Route: 065
  12. XANAX [Concomitant]
     Indication: ANXIETY
     Route: 065
  13. BRIMONIDINE [Concomitant]
     Indication: GLAUCOMA
     Route: 065

REACTIONS (7)
  - Pulmonary oedema [Unknown]
  - Syncope [Recovered/Resolved]
  - Abdominal discomfort [Not Recovered/Not Resolved]
  - Balance disorder [Recovered/Resolved]
  - Decreased appetite [Not Recovered/Not Resolved]
  - Adverse event [Unknown]
  - Abnormal loss of weight [Not Recovered/Not Resolved]
